FAERS Safety Report 14178358 (Version 3)
Quarter: 2018Q1

REPORT INFORMATION
  Report Type: Spontaneous
  Country: BR (occurrence: BR)
  Receive Date: 20171110
  Receipt Date: 20180308
  Transmission Date: 20180508
  Serious: Yes (Other)
  Sender: FDA-Public Use
  Company Number: BR-AMGEN-BRASP2017169068

PATIENT
  Age: 35 Year
  Sex: Female

DRUGS (3)
  1. PREDSIM [Concomitant]
     Active Substance: PREDNISOLONE
     Dosage: UNK
  2. PRELONE [Concomitant]
     Active Substance: PREDNISOLONE
     Dosage: UNK
  3. ENBREL [Suspect]
     Active Substance: ETANERCEPT
     Indication: ANKYLOSING SPONDYLITIS
     Dosage: 50 MG (1 SYRINGE), WEEKLY IN THE BELLY
     Route: 065
     Dates: start: 201604

REACTIONS (10)
  - Ocular hyperaemia [Not Recovered/Not Resolved]
  - Uveitis [Recovered/Resolved]
  - Cough [Recovered/Resolved]
  - Drug effect incomplete [Not Recovered/Not Resolved]
  - Vision blurred [Not Recovered/Not Resolved]
  - Pharyngeal inflammation [Recovered/Resolved]
  - Influenza [Recovered/Resolved]
  - Blindness unilateral [Recovered/Resolved]
  - Vitritis [Recovered/Resolved]
  - Vitreous detachment [Recovered/Resolved]

NARRATIVE: CASE EVENT DATE: 20160801
